FAERS Safety Report 23733444 (Version 1)
Quarter: 2024Q2

REPORT INFORMATION
  Report Type: Spontaneous
  Country: CA (occurrence: CA)
  Receive Date: 20240411
  Receipt Date: 20240411
  Transmission Date: 20240716
  Serious: Yes (Other)
  Sender: FDA-Public Use
  Company Number: CA-WOODWARD-2024-CA-002037

PATIENT
  Age: 67 Year
  Sex: Male

DRUGS (20)
  1. RABEPRAZOLE SODIUM [Suspect]
     Active Substance: RABEPRAZOLE SODIUM
     Indication: Product used for unknown indication
     Dosage: UNKNOWN
     Route: 048
  2. DILAUDID [Concomitant]
     Active Substance: HYDROMORPHONE HYDROCHLORIDE
     Dosage: UNKNOWN
  3. ENBREL [Concomitant]
     Active Substance: ETANERCEPT
     Dosage: UNKNOWN
  4. EUCRISA [Concomitant]
     Active Substance: CRISABOROLE
     Dosage: UNKNOWN
  5. GUSELKUMAB [Concomitant]
     Active Substance: GUSELKUMAB
     Dosage: UNKNOWN
  6. HUMIRA [Concomitant]
     Active Substance: ADALIMUMAB
     Dosage: UNKNOWN
  7. METHOTREXATE [Concomitant]
     Active Substance: METHOTREXATE
     Dosage: UNKNOWN
  8. PREDNISONE ACETATE [Concomitant]
     Active Substance: PREDNISONE ACETATE
     Dosage: UNKNOWN
  9. STELARA [Concomitant]
     Active Substance: USTEKINUMAB
     Dosage: UNKNOWN
     Route: 058
  10. LINAGLIPTIN [Concomitant]
     Active Substance: LINAGLIPTIN
     Dosage: UNKNOWN
  11. TRESIBA [Concomitant]
     Active Substance: INSULIN DEGLUDEC
     Dosage: UNKNOWN
  12. METFORMIN [Suspect]
     Active Substance: METFORMIN HYDROCHLORIDE
     Dosage: DOSE AND FREQUENCY UNKNOWN
  13. ZOPICLONE [Concomitant]
     Active Substance: ZOPICLONE
     Dosage: UNKNOWN
  14. LEFLUNOMIDE [Suspect]
     Active Substance: LEFLUNOMIDE
     Dosage: DOSE AND FREQUENCY UNKNOWN
     Route: 048
  15. TAMSULOSIN [Suspect]
     Active Substance: TAMSULOSIN
     Dosage: 1 IN 1 DAY; DOSE UNKNOWN
     Route: 048
  16. TELMISARTAN [Suspect]
     Active Substance: TELMISARTAN
     Dosage: 1 IN 1 DAY; DOSE UNKNOWN
     Route: 048
  17. ALLOPURINOL [Concomitant]
     Active Substance: ALLOPURINOL
     Dosage: UNKNOWN
  18. BETAMETHASONE DIPROPIONATE\CALCIPOTRIENE [Concomitant]
     Active Substance: BETAMETHASONE DIPROPIONATE\CALCIPOTRIENE
     Dosage: UNKNOWN
  19. CANNABIS SATIVA FLOWERING TOP [Concomitant]
     Active Substance: CANNABIS SATIVA FLOWERING TOP
     Dosage: UNKNOWN
  20. CYMBALTA [Concomitant]
     Active Substance: DULOXETINE HYDROCHLORIDE
     Dosage: UNKNOWN

REACTIONS (7)
  - Wrist fracture [Unknown]
  - COVID-19 [Unknown]
  - Ankle fracture [Unknown]
  - Drug-induced liver injury [Unknown]
  - Joint dislocation [Unknown]
  - Shoulder arthroplasty [Unknown]
  - Shoulder fracture [Unknown]
